FAERS Safety Report 5732793-5 (Version None)
Quarter: 2008Q2

REPORT INFORMATION
  Report Type: 
  Country: None (occurrence: None)
  Receive Date: 20080507
  Receipt Date: 20080507
  Transmission Date: 20081010
  Serious: Yes (Hospitalization)
  Sender: FDA-Public Use
  Company Number: None

PATIENT
  Age: 86 Year
  Sex: Male

DRUGS (5)
  1. DIGOXIN [Suspect]
  2. POTASSIUM CHLORIDE [Suspect]
  3. SPIRONOLACTONE [Suspect]
  4. DILTIAZEM [Suspect]
  5. BISOPROLOL FUMARATE [Suspect]

REACTIONS (7)
  - ASTHENIA [None]
  - CARDIOACTIVE DRUG LEVEL INCREASED [None]
  - HYPERKALAEMIA [None]
  - HYPOTENSION [None]
  - NODAL ARRHYTHMIA [None]
  - PRESYNCOPE [None]
  - RENAL FAILURE ACUTE [None]
